FAERS Safety Report 8976139 (Version 4)
Quarter: 2014Q1

REPORT INFORMATION
  Report Type: Spontaneous
  Country: ES (occurrence: ES)
  Receive Date: 20121220
  Receipt Date: 20140211
  Transmission Date: 20141002
  Serious: Yes (Hospitalization, Other)
  Sender: FDA-Public Use
  Company Number: ES-VERTEX PHARMACEUTICALS INC.-2012-026487

PATIENT
  Age: 40 Year
  Sex: Male

DRUGS (3)
  1. INCIVO [Suspect]
     Indication: CHRONIC HEPATITIS C
     Dosage: 750 MG, TID
     Route: 048
     Dates: start: 201211, end: 20121210
  2. RIBAVIRIN [Suspect]
     Indication: CHRONIC HEPATITIS C
     Route: 065
     Dates: start: 201211, end: 20121210
  3. PEG INTERFERON [Suspect]
     Indication: CHRONIC HEPATITIS C
     Dates: start: 201211, end: 20121210

REACTIONS (2)
  - Ascites [Recovered/Resolved]
  - Hepatic failure [Recovered/Resolved]
